FAERS Safety Report 4697844-8 (Version None)
Quarter: 2005Q2

REPORT INFORMATION
  Report Type: 
  Country: None (occurrence: None)
  Receive Date: 20050119
  Receipt Date: 20050119
  Transmission Date: 20051028
  Serious: No
  Sender: FDA-Public Use
  Company Number: None

PATIENT
  Sex: Female

DRUGS (3)
  1. GENERIC FLUPHENAZINE [Suspect]
     Indication: PARANOIA
     Dosage: ORAL
     Route: 048
     Dates: start: 20040101
  2. GENERIC FLUPHENAZINE [Suspect]
     Indication: SCHIZOPHRENIA
     Dosage: ORAL
     Route: 048
     Dates: start: 20040101
  3. . [Concomitant]

REACTIONS (4)
  - FEELING ABNORMAL [None]
  - PARANOIA [None]
  - THERAPEUTIC RESPONSE UNEXPECTED WITH DRUG SUBSTITUTION [None]
  - THINKING ABNORMAL [None]
